FAERS Safety Report 8952933 (Version 2)
Quarter: 2013Q1

REPORT INFORMATION
  Report Type: Spontaneous
  Country: DE (occurrence: DE)
  Receive Date: 20121203
  Receipt Date: 20130129
  Transmission Date: 20140127
  Serious: Yes (Hospitalization)
  Sender: FDA-Public Use
  Company Number: DE-ELI_LILLY_AND_COMPANY-DE201211007365

PATIENT
  Sex: Female

DRUGS (8)
  1. NEBILET [Concomitant]
     Dosage: UNK, UNKNOWN
  2. PENTALONG [Concomitant]
     Dosage: UNK, UNKNOWN
  3. METFORMIN [Concomitant]
     Dosage: UNK, UNKNOWN
     Dates: start: 201204
  4. BYDUREON [Suspect]
     Indication: DIABETES MELLITUS
     Dosage: 2 MG, UNKNOWN
     Route: 058
     Dates: start: 20120802, end: 20121021
  5. ASS [Concomitant]
     Dosage: 100 DF, UNKNOWN
  6. INEGY [Concomitant]
     Dosage: 20 DF, UNKNOWN
  7. CITALOPRAM [Concomitant]
     Dosage: UNK, UNKNOWN
  8. L-THYROXIN [Concomitant]
     Dosage: UNK, UNKNOWN

REACTIONS (8)
  - Abdominal pain [Not Recovered/Not Resolved]
  - Nausea [Not Recovered/Not Resolved]
  - Vomiting [Not Recovered/Not Resolved]
  - Diarrhoea [Not Recovered/Not Resolved]
  - Faeces hard [Not Recovered/Not Resolved]
  - Oesophageal irritation [Not Recovered/Not Resolved]
  - Epigastric discomfort [Not Recovered/Not Resolved]
  - Gastroenteritis [Recovering/Resolving]
